FAERS Safety Report 5874142-8 (Version None)
Quarter: 2008Q3

REPORT INFORMATION
  Report Type: 
  Country: None (occurrence: None)
  Receive Date: 20080908
  Receipt Date: 20080715
  Transmission Date: 20090109
  Serious: Yes (Other)
  Sender: FDA-Public Use
  Company Number: BE-BAXTER-2008BH007405

PATIENT
  Age: 85 Year
  Sex: Female

DRUGS (2)
  1. VANCOMYCIN HCL [Suspect]
     Indication: URINARY TRACT INFECTION
     Dosage: DOSE UNIT:UNKNOWN
     Route: 065
  2. VANCOMYCIN HCL [Suspect]
     Indication: STAPHYLOCOCCAL INFECTION
     Dosage: DOSE UNIT:UNKNOWN
     Route: 065

REACTIONS (1)
  - LINEAR IGA DISEASE [None]
